FAERS Safety Report 4982546-0 (Version None)
Quarter: 2006Q1

REPORT INFORMATION
  Report Type: 
  Country: None (occurrence: None)
  Receive Date: 20060227
  Receipt Date: 20051101
  Transmission Date: 20060701
  Serious: Yes (Hospitalization)
  Sender: FDA-Public Use
  Company Number: WAES 0511USA00428

PATIENT
  Age: 65 Year
  Sex: Male
  Weight: 93.8946 kg

DRUGS (11)
  1. ZOCOR [Suspect]
     Indication: HYPERLIPIDAEMIA
     Dosage: 80 MG/DAILY/PO
     Route: 048
     Dates: start: 20040101, end: 20050928
  2. BYETTA [Suspect]
     Indication: DIABETES MELLITUS NON-INSULIN-DEPENDENT
     Dosage: 5 MICROGM/BID/SC
     Route: 058
     Dates: start: 20050831, end: 20050928
  3. HUMALOG [Concomitant]
  4. LANTUS [Concomitant]
  5. LASIX [Concomitant]
  6. NORVASC [Concomitant]
  7. PRILOSEC [Concomitant]
  8. PRINIVIL [Concomitant]
  9. INSULIN, BIPHASIC ISOPHANE (INJE [Concomitant]
  10. METOPROLOL TARTRATE [Concomitant]
  11. POTASSIUM CHLORIDE [Concomitant]

REACTIONS (4)
  - BLOOD CREATINE PHOSPHOKINASE INCREASED [None]
  - LIVER FUNCTION TEST ABNORMAL [None]
  - MYALGIA [None]
  - MYOPATHY [None]
